FAERS Safety Report 8679650 (Version 3)
Quarter: 2016Q2

REPORT INFORMATION
  Report Type: Spontaneous
  Country: FR (occurrence: FR)
  Receive Date: 20120724
  Receipt Date: 20160429
  Transmission Date: 20160815
  Serious: Yes (Life-Threatening, Hospitalization, Other)
  Sender: FDA-Public Use
  Company Number: FR-ELI_LILLY_AND_COMPANY-FR201206001265

PATIENT
  Age: 47 Year
  Sex: Male

DRUGS (6)
  1. ZYPADHERA [Suspect]
     Active Substance: OLANZAPINE PAMOATE
     Indication: SCHIZOPHRENIA
     Dosage: 405 MG, 2/W
     Route: 030
     Dates: start: 20120511
  2. OLANZAPINE. [Suspect]
     Active Substance: OLANZAPINE
     Indication: SCHIZOPHRENIA
     Dosage: 20 MG, QD
     Route: 048
     Dates: end: 20120511
  3. TRANXENE T-TAB [Concomitant]
     Active Substance: CLORAZEPATE DIPOTASSIUM
     Dosage: 10 MG, QD
     Dates: start: 20120521
  4. NOCTAMIDE [Concomitant]
     Active Substance: LORMETAZEPAM
     Dosage: 1 MG, QD
     Dates: start: 20120424
  5. OLANZAPINE. [Suspect]
     Active Substance: OLANZAPINE
     Dosage: 20 MG, QD
     Route: 048
     Dates: start: 20120525
  6. LESCOL [Concomitant]
     Active Substance: FLUVASTATIN SODIUM
     Dosage: 40 MG, UNK
     Dates: start: 20120425

REACTIONS (3)
  - Somnolence [Recovered/Resolved]
  - Prescribed overdose [Recovered/Resolved]
  - Coma [Recovered/Resolved]

NARRATIVE: CASE EVENT DATE: 20120525
